FAERS Safety Report 23143992 (Version 3)
Quarter: 2023Q4

REPORT INFORMATION
  Report Type: Report from Study
  Country: CA (occurrence: CA)
  Receive Date: 20231103
  Receipt Date: 20231128
  Transmission Date: 20240110
  Serious: Yes (Other)
  Sender: FDA-Public Use
  Company Number: CA-SANDOZ-SDZ2023CA050195

PATIENT
  Sex: Female

DRUGS (1)
  1. HYRIMOZ [Suspect]
     Active Substance: ADALIMUMAB-ADAZ
     Indication: Crohn^s disease
     Dosage: 40 MG, QW
     Route: 058
     Dates: start: 20230906

REACTIONS (7)
  - Crohn^s disease [Unknown]
  - Haematochezia [Unknown]
  - Blood test abnormal [Unknown]
  - Off label use [Unknown]
  - Quality of life decreased [Unknown]
  - Diarrhoea [Unknown]
  - Drug ineffective [Unknown]
